FAERS Safety Report 4546724-7 (Version None)
Quarter: 2005Q1

REPORT INFORMATION
  Report Type: 
  Country: None (occurrence: None)
  Receive Date: 20050105
  Receipt Date: 20041228
  Transmission Date: 20050727
  Serious: Yes (Hospitalization, Other)
  Sender: FDA-Public Use
  Company Number: 2004224840JP

PATIENT
  Age: 61 Year
  Sex: Female
  Weight: 53 kg

DRUGS (2)
  1. AROMASIN [Suspect]
     Indication: BREAST CANCER
     Dosage: 25 MG (25 MG, DAY), ORAL
     Route: 048
     Dates: start: 20040607, end: 20040628
  2. ERUDIN (ESTAZOLAM) [Concomitant]

REACTIONS (5)
  - BODY TEMPERATURE DECREASED [None]
  - HEPATITIS ACUTE [None]
  - HIRSUTISM [None]
  - INSOMNIA [None]
  - PYREXIA [None]
